FAERS Safety Report 7002439-7 (Version None)
Quarter: 2010Q3

REPORT INFORMATION
  Report Type: 
  Country: None (occurrence: None)
  Receive Date: 20100920
  Receipt Date: 20100909
  Transmission Date: 20110219
  Serious: Yes (Other)
  Sender: FDA-Public Use
  Company Number: GB-ASTRAZENECA-2010SE42372

PATIENT
  Age: 46 Year
  Sex: Female
  Weight: 138 kg

DRUGS (17)
  1. OMEPRAZOLE [Suspect]
     Indication: GASTROOESOPHAGEAL REFLUX DISEASE
     Route: 048
     Dates: start: 20060511, end: 20100727
  2. AQUEOUS CREAM [Concomitant]
  3. BISOPROLOL FUMARATE [Concomitant]
     Route: 048
  4. DIGOXIN [Concomitant]
     Indication: ATRIAL FIBRILLATION
     Route: 048
     Dates: start: 20040101
  5. DIGOXIN [Concomitant]
     Indication: CARDIAC FAILURE CHRONIC
     Route: 048
     Dates: start: 20040101
  6. FERROUS SULFATE [Concomitant]
  7. FUROSEMIDE [Concomitant]
  8. GLICLAZIDE [Concomitant]
  9. ISOSORBIDE MONONITRATE [Concomitant]
  10. METFORMIN HYDROCHLORIDE [Concomitant]
     Dates: start: 20060101
  11. PARACETAMOL [Concomitant]
  12. RAMIPRIL [Concomitant]
  13. SIMVASTATIN [Concomitant]
  14. SITAGLIPTIN [Concomitant]
  15. TRAZODONE HYDROCHLORIDE [Concomitant]
  16. WARFARIN SODIUM [Concomitant]
     Indication: ATRIAL FIBRILLATION
     Route: 048
     Dates: start: 20040101
  17. WARFARIN SODIUM [Concomitant]
     Indication: CARDIAC FAILURE CHRONIC
     Route: 048
     Dates: start: 20040101

REACTIONS (2)
  - HYPOCALCAEMIA [None]
  - TETANY [None]
